FAERS Safety Report 7880395-7 (Version None)
Quarter: 2011Q4

REPORT INFORMATION
  Report Type: 
  Country: None (occurrence: None)
  Receive Date: 20111101
  Receipt Date: 20111021
  Transmission Date: 20120403
  Serious: Yes (Hospitalization)
  Sender: FDA-Public Use
  Company Number: PHEH2011US06265

PATIENT
  Sex: Female

DRUGS (1)
  1. EXJADE [Suspect]
     Dosage: 2500 MG, QD
     Route: 048
     Dates: start: 20110921

REACTIONS (5)
  - DIARRHOEA [None]
  - CHEST PAIN [None]
  - ABDOMINAL PAIN [None]
  - DYSPEPSIA [None]
  - ABDOMINAL DISTENSION [None]
